FAERS Safety Report 15942538 (Version 1)
Quarter: 2019Q1

REPORT INFORMATION
  Report Type: Spontaneous
  Country: US (occurrence: US)
  Receive Date: 20190211
  Receipt Date: 20190211
  Transmission Date: 20190417
  Serious: No
  Sender: FDA-Public Use
  Company Number: None

PATIENT
  Age: 41 Year
  Sex: Male
  Weight: 81.65 kg

DRUGS (2)
  1. SULFAMETHOXAZOLE/TRIMETHOPRIM, 800 MG/160 MG MG [Suspect]
     Active Substance: SULFAMETHOXAZOLE\TRIMETHOPRIM
     Indication: FOLLICULITIS
     Dosage: 800/160 MG BID ORAL
     Route: 048
     Dates: start: 20190205, end: 20190210
  2. SULFAMETHOXAZOLE/TRIMETHOPRIM, 800 MG/160 MG MG [Suspect]
     Active Substance: SULFAMETHOXAZOLE\TRIMETHOPRIM
     Indication: SKIN INFECTION
     Dosage: 800/160 MG BID ORAL
     Route: 048
     Dates: start: 20190205, end: 20190210

REACTIONS (2)
  - Swollen tongue [None]
  - Blister [None]

NARRATIVE: CASE EVENT DATE: 20190210
